FAERS Safety Report 8810340 (Version 5)
Quarter: 2014Q1

REPORT INFORMATION
  Report Type: Spontaneous
  Country: US (occurrence: US)
  Receive Date: 20120926
  Receipt Date: 20140109
  Transmission Date: 20141002
  Serious: Yes (Hospitalization, Other)
  Sender: FDA-Public Use
  Company Number: US-009507513-1209USA007132

PATIENT
  Sex: Female

DRUGS (2)
  1. FOSAMAX [Suspect]
     Indication: OSTEOPOROSIS
     Dosage: 10 MG, QD
     Route: 048
     Dates: start: 1996
  2. FOSAMAX [Suspect]
     Indication: OSTEOPENIA
     Dosage: 70 MG, QW
     Route: 048
     Dates: end: 200502

REACTIONS (35)
  - Intramedullary rod insertion [Recovering/Resolving]
  - Fall [Recovering/Resolving]
  - Mastectomy [Unknown]
  - Liver operation [Unknown]
  - Surgery [Unknown]
  - Femur fracture [Recovering/Resolving]
  - Thoracic vertebral fracture [Unknown]
  - Hypertension [Unknown]
  - Transfusion [Unknown]
  - Spinal compression fracture [Unknown]
  - Vertebroplasty [Unknown]
  - Spinal compression fracture [Unknown]
  - Skeletal injury [Unknown]
  - Injury [Unknown]
  - Bone disorder [Unknown]
  - Dyslipidaemia [Unknown]
  - Radiotherapy [Unknown]
  - Lymphadenectomy [Unknown]
  - Hepatic cyst [Unknown]
  - Tuberculosis [Unknown]
  - Hyperglycaemia [Unknown]
  - Mitral valve prolapse [Unknown]
  - Weight increased [Unknown]
  - Atrioventricular block first degree [Unknown]
  - Anaemia [Unknown]
  - Spinal compression fracture [Unknown]
  - Impaired healing [Unknown]
  - Vertebroplasty [Unknown]
  - Hot flush [Unknown]
  - Fatigue [Unknown]
  - Dry eye [Unknown]
  - Vertebroplasty [Unknown]
  - Osteoarthritis [Unknown]
  - Cataract [Unknown]
  - Fracture [Unknown]
